FAERS Safety Report 19074718 (Version 1)
Quarter: 2021Q1

REPORT INFORMATION
  Report Type: Spontaneous
  Country: US (occurrence: US)
  Receive Date: 20210330
  Receipt Date: 20210330
  Transmission Date: 20210420
  Serious: No
  Sender: FDA-Public Use
  Company Number: US-ROCHE-2745787

PATIENT
  Sex: Male
  Weight: 83.99 kg

DRUGS (2)
  1. ERIVEDGE [Suspect]
     Active Substance: VISMODEGIB
     Indication: PRODUCT USED FOR UNKNOWN INDICATION
     Dosage: ONGOING?YES, RESTART
     Route: 048
     Dates: start: 20201204
  2. ERIVEDGE [Suspect]
     Active Substance: VISMODEGIB
     Dosage: ONGOING?NO
     Route: 048

REACTIONS (1)
  - Abdominal pain upper [Unknown]
